FAERS Safety Report 19156874 (Version 1)
Quarter: 2021Q2

REPORT INFORMATION
  Report Type: Spontaneous
  Country: US (occurrence: US)
  Receive Date: 20210419
  Receipt Date: 20210419
  Transmission Date: 20210717
  Serious: Yes (Other)
  Sender: FDA-Public Use
  Company Number: None

PATIENT
  Age: 64 Year
  Sex: Male
  Weight: 94.5 kg

DRUGS (1)
  1. SCOPOLAMINE TRANSDERMAL SYSTEM 1MG/3DAYS [Suspect]
     Active Substance: SCOPOLAMINE
     Indication: MOTION SICKNESS
     Dosage: ?          QUANTITY:1 PATCH(ES);?
     Route: 062

REACTIONS (9)
  - Aggression [None]
  - Nausea [None]
  - Middle insomnia [None]
  - Product colour issue [None]
  - Dizziness [None]
  - Product quality issue [None]
  - Product size issue [None]
  - Speech disorder [None]
  - Vertigo [None]

NARRATIVE: CASE EVENT DATE: 20210415
